FAERS Safety Report 9221502 (Version 1)
Quarter: 2013Q1

REPORT INFORMATION
  Report Type: Spontaneous
  Country: US (occurrence: None)
  Receive Date: 20120831
  Receipt Date: 20120831
  Transmission Date: 20140127
  Serious: No
  Sender: FDA-Public Use
  Company Number: 1000029741

PATIENT
  Age: 75 Year
  Sex: Female

DRUGS (7)
  1. DALIRESP [Suspect]
     Indication: CHRONIC OBSTRUCTIVE PULMONARY DISEASE
     Route: 048
     Dates: start: 20120405, end: 20120408
  2. LOTENSIN (BENAZEPRIL) (BENAZEPRIL) [Concomitant]
  3. GLUCOPHAGE (METFORMIN HYDROCHLORIDE) METFORMIN HYDROCHLORIDE) [Concomitant]
  4. AMARYL (GLIMEPIRIDE) (GLIMEPIRIDE) [Concomitant]
  5. LIPITOR (ATOVASTATIN CALCIUM) (ATORVASTATIN CALCIUM) [Concomitant]
  6. ADVAIR (SERETIDE) (SERETIDE) [Concomitant]
  7. SPIRIVA (TIOTROPIUM BROMIDE) (TIOTROPIUM BROMIDE) [Concomitant]

REACTIONS (5)
  - Nausea [None]
  - Dizziness [None]
  - Headache [None]
  - Influenza like illness [None]
  - Vomiting [None]
